FAERS Safety Report 19039429 (Version 4)
Quarter: 2024Q2

REPORT INFORMATION
  Report Type: Report from Study
  Country: US (occurrence: US)
  Receive Date: 20210322
  Receipt Date: 20240510
  Transmission Date: 20240715
  Serious: No
  Sender: FDA-Public Use
  Company Number: US-TAKEDA-US201843286

PATIENT
  Age: 52 Year
  Sex: Female
  Weight: 51 kg

DRUGS (16)
  1. TEDUGLUTIDE [Suspect]
     Active Substance: TEDUGLUTIDE
     Indication: Short-bowel syndrome
     Dosage: 2.8 MILLIGRAM, QD
     Route: 042
     Dates: start: 20131020, end: 20150202
  2. TEDUGLUTIDE [Suspect]
     Active Substance: TEDUGLUTIDE
     Indication: Short-bowel syndrome
     Dosage: 2.8 MILLIGRAM, QD
     Route: 042
     Dates: start: 20131020, end: 20150202
  3. TEDUGLUTIDE [Suspect]
     Active Substance: TEDUGLUTIDE
     Indication: Short-bowel syndrome
     Dosage: 2.8 MILLIGRAM, QD
     Route: 042
     Dates: start: 20131020, end: 20150202
  4. TEDUGLUTIDE [Suspect]
     Active Substance: TEDUGLUTIDE
     Indication: Short-bowel syndrome
     Dosage: 2.8 MILLIGRAM, QD
     Route: 042
     Dates: start: 20131020, end: 20150202
  5. TEDUGLUTIDE [Suspect]
     Active Substance: TEDUGLUTIDE
     Dosage: 2.8 MILLIGRAM, 3/WEEK
     Route: 042
     Dates: start: 20150203, end: 201511
  6. TEDUGLUTIDE [Suspect]
     Active Substance: TEDUGLUTIDE
     Dosage: 2.8 MILLIGRAM, 3/WEEK
     Route: 042
     Dates: start: 20150203, end: 201511
  7. TEDUGLUTIDE [Suspect]
     Active Substance: TEDUGLUTIDE
     Dosage: 2.8 MILLIGRAM, 3/WEEK
     Route: 042
     Dates: start: 20150203, end: 201511
  8. TEDUGLUTIDE [Suspect]
     Active Substance: TEDUGLUTIDE
     Dosage: 2.8 MILLIGRAM, 3/WEEK
     Route: 042
     Dates: start: 20150203, end: 201511
  9. ERTAPENEM [Concomitant]
     Active Substance: ERTAPENEM
     Indication: Vascular device infection
  10. PANTOPRAZOLE [Concomitant]
     Active Substance: PANTOPRAZOLE
     Indication: Gastrooesophageal reflux disease
  11. LACTOBACILLUS RHAMNOSUS [Concomitant]
     Active Substance: LACTOBACILLUS RHAMNOSUS
     Indication: Prophylaxis
  12. VITAMIN D3 [Concomitant]
     Active Substance: CHOLECALCIFEROL
     Indication: Vitamin supplementation
  13. LIDOCAINE [Concomitant]
     Active Substance: LIDOCAINE
     Indication: Hepatic encephalopathy
     Dosage: UNK, SINGLE
     Route: 065
     Dates: start: 20200902, end: 20200902
  14. ECOTRIN [Concomitant]
     Active Substance: ASPIRIN
     Indication: Hepatic encephalopathy
     Dosage: 81 MILLIGRAM
     Route: 048
     Dates: start: 20200902, end: 20200902
  15. KEPPRA [Concomitant]
     Active Substance: LEVETIRACETAM
     Indication: Hepatic encephalopathy
     Dosage: 750 MILLIGRAM, BID
     Route: 048
     Dates: start: 20200902, end: 20200902
  16. PROGRAF [Concomitant]
     Active Substance: TACROLIMUS
     Indication: Hepatic encephalopathy
     Dosage: 2 MILLIGRAM, BID
     Route: 048
     Dates: start: 20200902, end: 20200902

REACTIONS (1)
  - Lipase increased [Recovered/Resolved]

NARRATIVE: CASE EVENT DATE: 20180509
